FAERS Safety Report 18324940 (Version 2)
Quarter: 2020Q4

REPORT INFORMATION
  Report Type: Spontaneous
  Country: US (occurrence: US)
  Receive Date: 20200929
  Receipt Date: 20201002
  Transmission Date: 20210113
  Serious: Yes (Other)
  Sender: FDA-Public Use
  Company Number: US-PFIZER INC-2020371933

PATIENT
  Age: 56 Year
  Sex: Female

DRUGS (1)
  1. PROTONIX [Suspect]
     Active Substance: PANTOPRAZOLE SODIUM
     Dosage: 40 MG, DAILY, (TAKE 1 TABLET BY MOUTH DAILY)
     Route: 048

REACTIONS (2)
  - Orthostatic hypotension [Unknown]
  - Dehydration [Unknown]
